FAERS Safety Report 12808851 (Version 3)
Quarter: 2016Q4

REPORT INFORMATION
  Report Type: Report from Study
  Country: US (occurrence: US)
  Receive Date: 20161004
  Receipt Date: 20161230
  Transmission Date: 20170207
  Serious: Yes (Hospitalization)
  Sender: FDA-Public Use
  Company Number: US-OTSUKA-2016_022875

PATIENT
  Age: 30 Year
  Sex: Male

DRUGS (1)
  1. ARIPIPRAZOLE. [Suspect]
     Active Substance: ARIPIPRAZOLE
     Indication: PRODUCT USED FOR UNKNOWN INDICATION
     Dosage: 400 MG, QM
     Route: 030

REACTIONS (6)
  - Hallucination, auditory [Unknown]
  - Hallucination, visual [Unknown]
  - Neck pain [Unknown]
  - Paranoia [Unknown]
  - Drug effect decreased [Unknown]
  - Hospitalisation [Unknown]
